FAERS Safety Report 4947935-9 (Version None)
Quarter: 2006Q1

REPORT INFORMATION
  Report Type: 
  Country: None (occurrence: None)
  Receive Date: 20060314
  Receipt Date: 20060221
  Transmission Date: 20060701
  Serious: Yes (Hospitalization, Other)
  Sender: FDA-Public Use
  Company Number: US200602004153

PATIENT
  Sex: Female

DRUGS (1)
  1. HUMULIN L [Suspect]
     Dates: start: 19800101

REACTIONS (3)
  - ARTHRITIS [None]
  - CARDIAC DISORDER [None]
  - CORONARY ARTERY SURGERY [None]
